FAERS Safety Report 9099765 (Version 3)
Quarter: 2013Q1

REPORT INFORMATION
  Report Type: Spontaneous
  Country: FR (occurrence: FR)
  Receive Date: 20130214
  Receipt Date: 20130313
  Transmission Date: 20140127
  Serious: Yes (Life-Threatening)
  Sender: FDA-Public Use
  Company Number: FR-PFIZER INC-2013055842

PATIENT
  Age: 64 Year
  Sex: Male

DRUGS (18)
  1. ADRIBLASTINE [Suspect]
     Indication: HODGKIN^S DISEASE
     Dosage: 50 MG, 10 COURSES
     Route: 042
     Dates: start: 20120521, end: 20120924
  2. TAHOR [Suspect]
     Dosage: 40 MG, 1X/DAY
     Route: 048
  3. XANAX [Suspect]
     Dosage: 0.5 MG, 1X/DAY
     Route: 048
  4. BLEOMYCINE BELLON [Suspect]
     Indication: HODGKIN^S DISEASE
     Dosage: 19.8 MG, 10 COURSES
     Route: 042
     Dates: start: 20120521, end: 20120924
  5. VELBE [Suspect]
     Indication: HODGKIN^S DISEASE
     Dosage: 11.8 MG, COURSE 1 TO COURSE 4
     Route: 042
     Dates: start: 20120521, end: 20120702
  6. VELBE [Suspect]
     Dosage: 12 MG, COURSE 5 TO COURSE 10
     Dates: start: 20120716, end: 20120924
  7. DETICENE [Suspect]
     Indication: HODGKIN^S DISEASE
     Dosage: 740 MG, COURSE 1 TO COURSE 4
     Route: 042
     Dates: start: 20120521, end: 20120702
  8. DETICENE [Suspect]
     Dosage: 750 MG, COURSE 5 TO COURSE 10
     Dates: start: 20120716, end: 20120924
  9. METHYLPREDNISOLONE [Suspect]
     Indication: HODGKIN^S DISEASE
     Dosage: 237.6 MG, COURSE 1 TO COURSE 4
     Route: 042
     Dates: start: 20120521, end: 20120702
  10. METHYLPREDNISOLONE [Suspect]
     Dosage: 240 MG, COURSE 5 TO COURSE 10
     Dates: start: 20120716
  11. INEXIUM [Suspect]
     Dosage: 40 MG, 1X/DAY
     Route: 048
  12. COVERAM [Suspect]
     Dosage: 1 DF, 1X/DAY
     Route: 048
  13. PROCORALAN [Suspect]
     Dosage: 5 MG, 2X/DAY
     Route: 048
  14. SECTRAL [Suspect]
     Dosage: 100 MG, 2X/DAY
     Route: 048
  15. KARDEGIC [Suspect]
     Dosage: 160 MG, 1X/DAY
     Route: 048
  16. PLAVIX [Suspect]
     Dosage: 75 MG, 1X/DAY
     Route: 048
  17. ZOPHREN [Concomitant]
     Dosage: 8 MG, 10 COURSES
     Route: 042
  18. POLARAMINE [Concomitant]
     Dosage: 5 MG, FROM COURSE 1 TO COURSE 4 AND IN COURSE 9
     Route: 042

REACTIONS (2)
  - Pulmonary fibrosis [Not Recovered/Not Resolved]
  - Respiratory distress [Recovered/Resolved]
